FAERS Safety Report 18623658 (Version 1)
Quarter: 2020Q4

REPORT INFORMATION
  Report Type: Spontaneous
  Country: US (occurrence: US)
  Receive Date: 20201216
  Receipt Date: 20201216
  Transmission Date: 20210114
  Serious: Yes (Hospitalization, Other)
  Sender: FDA-Public Use
  Company Number: US-009507513-2012USA005781

PATIENT
  Sex: Female
  Weight: 68.03 kg

DRUGS (14)
  1. FOSAMAX [Suspect]
     Active Substance: ALENDRONATE SODIUM
     Indication: OSTEOPOROSIS PROPHYLAXIS
     Dosage: UNK
  2. LOVASTATIN. [Concomitant]
     Active Substance: LOVASTATIN
     Dosage: UNK
  3. MYTREX [Concomitant]
     Active Substance: NYSTATIN\TRIAMCINOLONE ACETONIDE
     Dosage: UNK
  4. VITAMINS (UNSPECIFIED) [Concomitant]
     Active Substance: VITAMINS
     Dosage: UNK
  5. FOSAMAX [Suspect]
     Active Substance: ALENDRONATE SODIUM
     Indication: OSTEOPOROSIS
     Dosage: UNKNOWN
     Route: 048
     Dates: start: 200903, end: 201102
  6. FOSAMAX [Suspect]
     Active Substance: ALENDRONATE SODIUM
     Dosage: 70 MG, 1/WEEK
     Route: 048
     Dates: start: 20090307, end: 20110112
  7. BACITRACIN. [Concomitant]
     Active Substance: BACITRACIN
     Dosage: UNK
  8. ACTONEL [Suspect]
     Active Substance: RISEDRONATE SODIUM
     Indication: OSTEOPOROSIS PROPHYLAXIS
     Dosage: UNK
  9. FOSAMAX [Suspect]
     Active Substance: ALENDRONATE SODIUM
     Indication: OSTEOPENIA
     Dosage: UNK
  10. CALCIUM (UNSPECIFIED) (+) VITAMIN D (UNSPECIFIED) [Concomitant]
     Active Substance: CALCIUM CARBONATE\VITAMIN D
     Dosage: UNK
  11. ACTONEL [Suspect]
     Active Substance: RISEDRONATE SODIUM
     Indication: OSTEOPOROSIS
     Dosage: 35 MG ONCE WEEKLY
     Route: 048
     Dates: start: 2003, end: 200903
  12. BONIVA [Suspect]
     Active Substance: IBANDRONATE SODIUM
     Dosage: UNK
     Dates: start: 200902, end: 200903
  13. OXISTAT [Concomitant]
     Active Substance: OXICONAZOLE NITRATE
     Dosage: 1% CREAM
     Route: 061
  14. ACTONEL [Suspect]
     Active Substance: RISEDRONATE SODIUM
     Indication: OSTEOPENIA
     Dosage: UNK
     Dates: start: 2001, end: 2003

REACTIONS (10)
  - Atypical femur fracture [Recovered/Resolved]
  - Arthralgia [Recovered/Resolved]
  - Femur fracture [Recovered/Resolved]
  - Stress fracture [Recovered/Resolved]
  - Musculoskeletal discomfort [Recovered/Resolved]
  - Arthralgia [Recovered/Resolved]
  - Trendelenburg^s symptom [Recovered/Resolved]
  - Femur fracture [Recovered/Resolved]
  - Muscular weakness [Recovered/Resolved]
  - Low turnover osteopathy [Unknown]

NARRATIVE: CASE EVENT DATE: 200911
